FAERS Safety Report 7288551-6 (Version None)
Quarter: 2011Q1

REPORT INFORMATION
  Report Type: 
  Country: None (occurrence: None)
  Receive Date: 20110211
  Receipt Date: 20101221
  Transmission Date: 20110831
  Serious: Yes (Hospitalization)
  Sender: FDA-Public Use
  Company Number: US-BAYER-201033809NA

PATIENT
  Sex: Female
  Weight: 139.68 kg

DRUGS (8)
  1. YASMIN [Suspect]
     Indication: PRODUCT USED FOR UNKNOWN INDICATION
     Dosage: UNK
     Route: 048
     Dates: start: 20060701, end: 20061001
  2. OCELLA [Suspect]
     Indication: PRODUCT USED FOR UNKNOWN INDICATION
     Route: 048
     Dates: start: 20060701
  3. YAZ [Suspect]
     Indication: PRODUCT USED FOR UNKNOWN INDICATION
     Route: 048
     Dates: start: 20060701
  4. PROMETHAZINE [Concomitant]
  5. PREVACID [Concomitant]
     Dosage: 30 MG, QD
  6. ZANTAC [Concomitant]
  7. DILAUDID [Concomitant]
  8. NEXIUM [Concomitant]
     Dosage: 40 MG, QD

REACTIONS (3)
  - PAIN [None]
  - SUPERIOR SAGITTAL SINUS THROMBOSIS [None]
  - JUGULAR VEIN THROMBOSIS [None]
